FAERS Safety Report 17300798 (Version 6)
Quarter: 2021Q3

REPORT INFORMATION
  Report Type: Other
  Country: US (occurrence: US)
  Receive Date: 20200122
  Receipt Date: 20210723
  Transmission Date: 20211014
  Serious: Yes (Other)
  Sender: FDA-Public Use
  Company Number: US-ROCHE-2529174

PATIENT
  Sex: Male

DRUGS (2)
  1. OCREVUS [Suspect]
     Active Substance: OCRELIZUMAB
     Indication: MULTIPLE SCLEROSIS
     Dosage: DATES OF TREATMENT: 09/OCT/2018, 24/OCT/2018, 25/APRIL/2019, 30/APRIL/2019, 09/OCT/2019, 07/MAY/2020
     Route: 042
     Dates: start: 201810
  2. OCREVUS [Suspect]
     Active Substance: OCRELIZUMAB
     Indication: RELAPSING MULTIPLE SCLEROSIS

REACTIONS (1)
  - Multiple sclerosis relapse [Unknown]
